FAERS Safety Report 6879925-3 (Version None)
Quarter: 2010Q3

REPORT INFORMATION
  Report Type: 
  Country: None (occurrence: None)
  Receive Date: 20100728
  Receipt Date: 20100723
  Transmission Date: 20110219
  Serious: Yes (Death)
  Sender: FDA-Public Use
  Company Number: ES-CELGENEUS-144-50794-10062269

PATIENT

DRUGS (1)
  1. VIDAZA [Suspect]
     Route: 050
     Dates: start: 20081201, end: 20091201

REACTIONS (1)
  - DEATH [None]
